FAERS Safety Report 7559689-0 (Version None)
Quarter: 2011Q2

REPORT INFORMATION
  Report Type: 
  Country: None (occurrence: None)
  Receive Date: 20110621
  Receipt Date: 20110608
  Transmission Date: 20111010
  Serious: Yes (Hospitalization, Other)
  Sender: FDA-Public Use
  Company Number: CH-ELI_LILLY_AND_COMPANY-CH201106004030

PATIENT
  Age: 69 Year
  Sex: Male
  Weight: 46.7 kg

DRUGS (8)
  1. ROHYPNOL [Concomitant]
     Dosage: 2 MG, QD
     Route: 048
     Dates: start: 20070101, end: 20110503
  2. NICOTINELL                         /01033301/ [Concomitant]
     Route: 048
  3. LYRICA [Concomitant]
     Dosage: 100 MG, TID
     Route: 048
     Dates: start: 20090201
  4. ZYPREXA [Suspect]
     Dosage: 10 MG, QD
     Route: 048
     Dates: start: 20070101
  5. NOZINAN [Concomitant]
     Dosage: 100 MG, QD
     Route: 048
     Dates: start: 20070101, end: 20110503
  6. TOLVON [Concomitant]
     Dosage: 60 MG, QD
     Route: 048
     Dates: start: 20070101
  7. ROHYPNOL [Concomitant]
     Dosage: UNK
     Route: 048
     Dates: start: 20110504
  8. NOZINAN [Concomitant]
     Dosage: 50 MG, QD
     Dates: start: 20110504

REACTIONS (16)
  - EXTRAPYRAMIDAL DISORDER [None]
  - MUTISM [None]
  - ABASIA [None]
  - DRY SKIN [None]
  - WEIGHT INCREASED [None]
  - RHABDOMYOLYSIS [None]
  - FALL [None]
  - CACHEXIA [None]
  - DRUG INTERACTION [None]
  - AFFECT LABILITY [None]
  - DRUG LEVEL INCREASED [None]
  - SKIN ULCER [None]
  - VITAMIN B12 DEFICIENCY [None]
  - ABNORMAL BEHAVIOUR [None]
  - AMNESIA [None]
  - VITAMIN D DEFICIENCY [None]
